FAERS Safety Report 7331369-6 (Version None)
Quarter: 2011Q1

REPORT INFORMATION
  Report Type: 
  Country: None (occurrence: None)
  Receive Date: 20110304
  Receipt Date: 20110223
  Transmission Date: 20110831
  Serious: Yes (Life-Threatening, Hospitalization)
  Sender: FDA-Public Use
  Company Number: CH-JNJFOC-20110205817

PATIENT
  Age: 63 Year
  Sex: Female
  Weight: 87 kg

DRUGS (7)
  1. GOLIMUMAB [Suspect]
     Indication: RHEUMATOID ARTHRITIS
     Route: 058
  2. METHOTREXATE [Concomitant]
     Indication: RHEUMATOID ARTHRITIS
     Route: 048
  3. GOLIMUMAB [Suspect]
     Route: 058
  4. ELTROXIN [Concomitant]
     Indication: HYPOPITUITARISM
     Route: 048
  5. DAFALGAN [Concomitant]
     Indication: ARTHRALGIA
     Route: 048
  6. TAMBOCOR [Concomitant]
     Indication: ATRIAL FIBRILLATION
     Route: 048
  7. HYDROCORTISONE [Concomitant]
     Indication: HYPOPITUITARISM
     Route: 048

REACTIONS (4)
  - INTESTINAL ISCHAEMIA [None]
  - MUCOSAL INDURATION [None]
  - GASTROINTESTINAL MUCOSAL DISORDER [None]
  - ABDOMINAL PAIN [None]
